FAERS Safety Report 25618716 (Version 2)
Quarter: 2025Q4

REPORT INFORMATION
  Report Type: Spontaneous
  Country: GP (occurrence: GP)
  Receive Date: 20250729
  Receipt Date: 20251016
  Transmission Date: 20260117
  Serious: Yes (Other)
  Sender: OTSUKA
  Company Number: EU-MMM-Otsuka-HTY6BKSM

PATIENT
  Age: 28 Year
  Sex: Male
  Weight: 144 kg

DRUGS (5)
  1. ARIPIPRAZOLE [Suspect]
     Active Substance: ARIPIPRAZOLE
     Indication: Persistent depressive disorder
     Dosage: 400 MG, QM  (INITIAL DOSE) FOR SEVERAL YEARS
     Route: 065
  2. ARIPIPRAZOLE [Suspect]
     Active Substance: ARIPIPRAZOLE
     Dosage: 300 MG (REDUCED DOSE)
     Route: 065
  3. ARIPIPRAZOLE [Suspect]
     Active Substance: ARIPIPRAZOLE
     Dosage: 400 MG, EVERY 3 WEEKS
     Route: 065
  4. ABILIFY [Suspect]
     Active Substance: ARIPIPRAZOLE
     Indication: Persistent depressive disorder
     Dosage: 15 MG, QD (IN THE EVENING FOR 15 DAYS)
     Route: 065
  5. PALIPERIDONE PALMITATE [Suspect]
     Active Substance: PALIPERIDONE PALMITATE
     Indication: Product used for unknown indication
     Dosage: UNK
     Route: 065

REACTIONS (12)
  - Self-destructive behaviour [Recovered/Resolved]
  - Symptom recurrence [Recovered/Resolved]
  - Persecutory delusion [Recovered/Resolved]
  - Malaise [Unknown]
  - Compulsive shopping [Recovered/Resolved]
  - Weight increased [Recovered/Resolved]
  - Unemployment [Unknown]
  - Product use in unapproved indication [Not Recovered/Not Resolved]
  - Treatment noncompliance [Recovered/Resolved]
  - Drug ineffective [Unknown]
  - Inappropriate schedule of product administration [Unknown]
  - Homeless [Recovered/Resolved]

NARRATIVE: CASE EVENT DATE: 20250101
